FAERS Safety Report 7149647-2 (Version None)
Quarter: 2010Q4

REPORT INFORMATION
  Report Type: 
  Country: None (occurrence: None)
  Receive Date: 20101209
  Receipt Date: 20101207
  Transmission Date: 20110411
  Serious: Yes (Hospitalization, Disabling, Other)
  Sender: FDA-Public Use
  Company Number: GB-MERCK-1012GBR00033

PATIENT
  Sex: Male
  Weight: 72 kg

DRUGS (3)
  1. ZETIA [Suspect]
     Indication: HYPERCHOLESTEROLAEMIA
     Route: 048
     Dates: start: 20091121, end: 20101001
  2. ATENOLOL [Concomitant]
     Route: 048
     Dates: start: 20000101
  3. LANSOPRAZOLE [Concomitant]
     Route: 048
     Dates: start: 20080101

REACTIONS (3)
  - DYSPLASIA [None]
  - GINGIVITIS [None]
  - LICHEN PLANUS [None]
